FAERS Safety Report 5342060-X (Version None)
Quarter: 2007Q2

REPORT INFORMATION
  Report Type: 
  Country: None (occurrence: None)
  Receive Date: 20070412
  Receipt Date: 20070124
  Transmission Date: 20071010
  Serious: Yes (Other)
  Sender: FDA-Public Use
  Company Number: 2007007201

PATIENT
  Age: 2 Year
  Sex: Female
  Weight: 16.3 kg

DRUGS (2)
  1. CETIRIZINE HCL [Suspect]
     Indication: HYPERSENSITIVITY
     Dosage: (1 IN 1 D), ORAL
     Route: 048
     Dates: start: 20060101
  2. MONTELUKAST SODIUM [Concomitant]

REACTIONS (3)
  - PNEUMONIA RESPIRATORY SYNCYTIAL VIRAL [None]
  - PRURITUS [None]
  - RASH [None]
